FAERS Safety Report 4825298-7 (Version None)
Quarter: 2005Q4

REPORT INFORMATION
  Report Type: 
  Country: None (occurrence: None)
  Receive Date: 20051109
  Receipt Date: 20051102
  Transmission Date: 20060501
  Serious: Yes (Other)
  Sender: FDA-Public Use
  Company Number: 2005149436

PATIENT
  Sex: Female

DRUGS (6)
  1. LYRICA [Suspect]
     Indication: NEURALGIA
     Dosage: ORAL
     Route: 048
  2. CORVATON ^AVENTIS PHARMA^ (MOLSIDOMINE) [Concomitant]
  3. ENALAPRIL MALEATE [Concomitant]
  4. NORVASC [Concomitant]
  5. DURAGESIC-100 [Concomitant]
  6. PREDNISOLONE [Concomitant]

REACTIONS (1)
  - EPILEPSY [None]
